FAERS Safety Report 8945713 (Version 1)
Quarter: 2012Q4

REPORT INFORMATION
  Report Type: 
  Country: US (occurrence: US)
  Receive Date: 20121204
  Receipt Date: 20121204
  Transmission Date: 20130627
  Serious: No
  Sender: FDA-Public Use
  Company Number: US-AMGEN-USASP2012073997

PATIENT
  Age: 57 Year
  Sex: Female
  Weight: 71.66 kg

DRUGS (9)
  1. ENBREL [Suspect]
     Indication: PSORIASIS
     Dosage: 50 mg, qwk
     Dates: start: 20120523
  2. ENBREL [Suspect]
     Indication: PSORIATIC ARTHROPATHY
  3. SIMVASTATIN [Concomitant]
     Dosage: 10 mg, UNK
  4. RANITIDINE [Concomitant]
     Dosage: 150 mg, UNK
  5. GLUCOSAMIN CHONDROITIN             /01430901/ [Concomitant]
     Dosage: 250/200
  6. FISH OIL [Concomitant]
     Dosage: UNK
  7. ALLERGY                            /00000402/ [Concomitant]
     Dosage: 25 mg, UNK
  8. CALCIUM + D3                       /00944201/ [Concomitant]
     Dosage: UNK
  9. MAGNESIUM [Concomitant]
     Dosage: 300 mg, UNK

REACTIONS (8)
  - Dental caries [Unknown]
  - Tooth fracture [Unknown]
  - Gingival pain [Not Recovered/Not Resolved]
  - Oral disorder [Not Recovered/Not Resolved]
  - Procedural pain [Not Recovered/Not Resolved]
  - Tooth infection [Unknown]
  - Tooth abscess [Unknown]
  - Oral herpes [Not Recovered/Not Resolved]
